FAERS Safety Report 5692378-6 (Version None)
Quarter: 2008Q2

REPORT INFORMATION
  Report Type: 
  Country: None (occurrence: None)
  Receive Date: 20080328
  Receipt Date: 20071221
  Transmission Date: 20081010
  Serious: Yes (Other)
  Sender: FDA-Public Use
  Company Number: US-WYE-H01941408

PATIENT
  Age: 59 Year
  Sex: Female

DRUGS (3)
  1. TORISEL [Suspect]
     Indication: RENAL CELL CARCINOMA STAGE IV
     Dosage: 25 MG 1X PER 1 WK, INTRAVENOUS
     Route: 042
     Dates: start: 20071221, end: 20071221
  2. DIPHENHYDRAMINE HCL [Concomitant]
  3. ZANTAC [Concomitant]

REACTIONS (2)
  - PAIN [None]
  - VOMITING [None]
